FAERS Safety Report 9198449 (Version 1)
Quarter: 2013Q1

REPORT INFORMATION
  Report Type: Spontaneous
  Country: US (occurrence: None)
  Receive Date: 20120709
  Receipt Date: 20120709
  Transmission Date: 20140127
  Serious: Yes (Other)
  Sender: FDA-Public Use
  Company Number: PHHY2011US55654

PATIENT
  Age: 58 Year
  Sex: Female

DRUGS (1)
  1. GLEEVEC (IMATINIB) [Suspect]
     Indication: GASTRIC CANCER
     Dosage: OD
     Route: 048
     Dates: start: 2005, end: 2006

REACTIONS (5)
  - Neoplasm recurrence [None]
  - Eye disorder [None]
  - Wrong technique in drug usage process [None]
  - Nausea [None]
  - Vomiting [None]
